FAERS Safety Report 8918397 (Version 1)
Quarter: 2012Q4

REPORT INFORMATION
  Report Type: 
  Country: US (occurrence: US)
  Receive Date: 20121120
  Receipt Date: 20121120
  Transmission Date: 20130627
  Serious: No
  Sender: FDA-Public Use
  Company Number: US-ASTRAZENECA-2012SE26614

PATIENT

DRUGS (2)
  1. NEXIUM [Suspect]
     Route: 048
  2. NEURONTIN [Concomitant]

REACTIONS (8)
  - Anxiety [Unknown]
  - Panic attack [Unknown]
  - Intervertebral disc degeneration [Unknown]
  - Arthritis [Unknown]
  - Sciatica [Unknown]
  - Intervertebral disc protrusion [Unknown]
  - Exostosis [Unknown]
  - Depression [Unknown]
